FAERS Safety Report 5893788-4 (Version None)
Quarter: 2008Q3

REPORT INFORMATION
  Report Type: 
  Country: None (occurrence: None)
  Receive Date: 20080923
  Receipt Date: 20080910
  Transmission Date: 20090109
  Serious: Yes (Other)
  Sender: FDA-Public Use
  Company Number: US-ELI_LILLY_AND_COMPANY-US200809002819

PATIENT
  Sex: Male

DRUGS (2)
  1. HUMULIN R [Suspect]
     Dosage: 34 U, 3/D
  2. HUMULIN R [Suspect]
     Dosage: 34 U, 3/D

REACTIONS (5)
  - ABASIA [None]
  - BLOOD GLUCOSE FLUCTUATION [None]
  - CARDIAC VALVE DISEASE [None]
  - INJECTION SITE PAIN [None]
  - MYOCARDIAL INFARCTION [None]
